FAERS Safety Report 11118606 (Version 4)
Quarter: 2024Q4

REPORT INFORMATION
  Report Type: Spontaneous
  Country: US (occurrence: US)
  Receive Date: 20150518
  Receipt Date: 20241023
  Transmission Date: 20250114
  Serious: Yes (Other)
  Sender: JOHNSON AND JOHNSON
  Company Number: US-JNJFOC-20150511160

PATIENT
  Age: 10 Year
  Sex: Male

DRUGS (23)
  1. RISPERDAL [Suspect]
     Active Substance: RISPERIDONE
     Indication: Attention deficit hyperactivity disorder
     Route: 048
     Dates: start: 20041221, end: 20050912
  2. RISPERDAL [Suspect]
     Active Substance: RISPERIDONE
     Indication: Post-traumatic stress disorder
     Route: 048
     Dates: start: 20050225, end: 20050528
  3. RISPERDAL [Suspect]
     Active Substance: RISPERIDONE
     Indication: Bipolar disorder
     Route: 048
     Dates: start: 20051205, end: 20060918
  4. RISPERDAL [Suspect]
     Active Substance: RISPERIDONE
     Route: 048
     Dates: start: 20050607, end: 20070421
  5. RISPERDAL [Suspect]
     Active Substance: RISPERIDONE
     Route: 048
     Dates: start: 20070616, end: 20070906
  6. RISPERDAL [Suspect]
     Active Substance: RISPERIDONE
     Dosage: VARYING DOSAGE OF 0.5 MG AND 1 MG
     Route: 048
     Dates: start: 20070913, end: 20080605
  7. RISPERDAL [Suspect]
     Active Substance: RISPERIDONE
     Route: 048
     Dates: start: 20071015
  8. RISPERDAL [Suspect]
     Active Substance: RISPERIDONE
     Route: 048
     Dates: start: 20071109
  9. RISPERDAL [Suspect]
     Active Substance: RISPERIDONE
     Dosage: VARYING DOSAGE OF 0.5 MG AND 1 MG
     Route: 048
     Dates: start: 20080226, end: 20090608
  10. RISPERDAL [Suspect]
     Active Substance: RISPERIDONE
     Route: 048
     Dates: start: 20080905, end: 20081125
  11. RISPERDAL [Suspect]
     Active Substance: RISPERIDONE
     Route: 048
     Dates: start: 20090102, end: 20100626
  12. RISPERDAL [Suspect]
     Active Substance: RISPERIDONE
     Route: 048
     Dates: start: 20051018, end: 20060517
  13. INVEGA [Suspect]
     Active Substance: PALIPERIDONE
     Indication: Product used for unknown indication
     Route: 048
     Dates: start: 2005, end: 2008
  14. INVEGA [Suspect]
     Active Substance: PALIPERIDONE
     Route: 048
     Dates: start: 2013
  15. RISPERDAL M-TAB [Suspect]
     Active Substance: RISPERIDONE
     Indication: Attention deficit hyperactivity disorder
     Route: 048
     Dates: start: 20070705, end: 20070906
  16. RISPERDAL M-TAB [Suspect]
     Active Substance: RISPERIDONE
     Indication: Post-traumatic stress disorder
     Route: 048
     Dates: start: 20070913, end: 20080605
  17. RISPERDAL M-TAB [Suspect]
     Active Substance: RISPERIDONE
     Indication: Bipolar disorder
     Route: 048
     Dates: start: 20080226, end: 20090608
  18. RISPERDAL M-TAB [Suspect]
     Active Substance: RISPERIDONE
     Route: 048
     Dates: start: 20050912
  19. RISPERDAL M-TAB [Suspect]
     Active Substance: RISPERIDONE
     Route: 048
     Dates: start: 20060620
  20. RISPERDAL M-TAB [Suspect]
     Active Substance: RISPERIDONE
     Route: 048
     Dates: start: 20070616, end: 20070705
  21. RISPERDAL [Suspect]
     Active Substance: RISPERIDONE
     Indication: Attention deficit hyperactivity disorder
     Dosage: VARYING DOSES OF 0.5 MG AND 1 MG
     Route: 048
     Dates: start: 20080911, end: 20091216
  22. RISPERDAL [Suspect]
     Active Substance: RISPERIDONE
     Indication: Post-traumatic stress disorder
     Route: 048
     Dates: start: 20100626
  23. RISPERIDONE [Suspect]
     Active Substance: RISPERIDONE
     Indication: Product used for unknown indication
     Route: 048

REACTIONS (4)
  - Gynaecomastia [Unknown]
  - Obesity [Unknown]
  - Emotional disorder [Unknown]
  - Off label use [Unknown]

NARRATIVE: CASE EVENT DATE: 20050101
